FAERS Safety Report 8895875 (Version 3)
Quarter: 2013Q1

REPORT INFORMATION
  Report Type: Spontaneous
  Country: DK (occurrence: JP)
  Receive Date: 20121108
  Receipt Date: 20130208
  Transmission Date: 20140127
  Serious: Yes (Hospitalization)
  Sender: FDA-Public Use
  Company Number: JP-FRI-1000040172

PATIENT
  Age: 21 Year
  Sex: Female

DRUGS (1)
  1. LEXAPRO [Suspect]
     Route: 048
     Dates: start: 20121010, end: 20121010

REACTIONS (5)
  - Agitation [Recovering/Resolving]
  - Delirium [Recovering/Resolving]
  - Tachycardia [Recovered/Resolved]
  - Hyperthyroidism [Recovered/Resolved]
  - Overdose [Recovering/Resolving]
